FAERS Safety Report 10103533 (Version 1)
Quarter: 2014Q2

REPORT INFORMATION
  Report Type: Spontaneous
  Country: US (occurrence: US)
  Receive Date: 20140424
  Receipt Date: 20140424
  Transmission Date: 20141212
  Serious: No
  Sender: FDA-Public Use
  Company Number: US-BRISTOL-MYERS SQUIBB COMPANY-20533782

PATIENT
  Age: 77 Year
  Sex: Female
  Weight: 77.1 kg

DRUGS (3)
  1. ELIQUIS [Suspect]
  2. CYCLOBENZAPRINE [Concomitant]
  3. NAPROXEN [Concomitant]

REACTIONS (1)
  - Rash pruritic [Not Recovered/Not Resolved]
